FAERS Safety Report 7313653-5 (Version None)
Quarter: 2011Q1

REPORT INFORMATION
  Report Type: 
  Country: None (occurrence: None)
  Receive Date: 20110225
  Receipt Date: 20110221
  Transmission Date: 20110831
  Serious: Yes (Other)
  Sender: FDA-Public Use
  Company Number: GB-PFIZER INC-2010084404

PATIENT
  Age: 56 Year
  Sex: Female
  Weight: 54 kg

DRUGS (2)
  1. LYRICA [Suspect]
     Indication: NEURALGIA
     Dosage: 75 MG, 2X/DAY
     Route: 048
     Dates: start: 20100401, end: 20100401
  2. OXYCODONE [Interacting]
     Dosage: 20 MG, 2X/DAY
     Route: 048
     Dates: start: 20100401, end: 20100401

REACTIONS (2)
  - SOMNOLENCE [None]
  - DRUG INTERACTION [None]
